FAERS Safety Report 15601516 (Version 3)
Quarter: 2019Q3

REPORT INFORMATION
  Report Type: Spontaneous
  Country: US (occurrence: US)
  Receive Date: 20181109
  Receipt Date: 20190702
  Transmission Date: 20191004
  Serious: Yes (Hospitalization)
  Sender: FDA-Public Use
  Company Number: US-PFIZER INC-2018454893

PATIENT
  Sex: Female

DRUGS (2)
  1. LYRICA [Suspect]
     Active Substance: PREGABALIN
     Dosage: 75 MG, 1X/DAY
  2. LYRICA [Suspect]
     Active Substance: PREGABALIN
     Dosage: 150 MG, 2X/DAY

REACTIONS (2)
  - Aphasia [Unknown]
  - Syncope [Unknown]
